FAERS Safety Report 22216824 (Version 1)
Quarter: 2023Q2

REPORT INFORMATION
  Report Type: Spontaneous
  Country: IR (occurrence: IR)
  Receive Date: 20230417
  Receipt Date: 20230417
  Transmission Date: 20230722
  Serious: Yes (Other)
  Sender: FDA-Public Use
  Company Number: IR-SUN PHARMACEUTICAL INDUSTRIES LTD-2023RR-384664

PATIENT
  Age: 37 Year
  Sex: Male

DRUGS (9)
  1. METFORMIN [Suspect]
     Active Substance: METFORMIN HYDROCHLORIDE
     Indication: Diabetes mellitus
     Dosage: 500 MILLIGRAM, BID
     Route: 065
  2. AMOXICILLIN\CLAVULANATE POTASSIUM [Suspect]
     Active Substance: AMOXICILLIN\CLAVULANATE POTASSIUM
     Indication: Gingival abscess
     Dosage: CO-AMOXICLAV 625 MG (AMOXICILLIN 500MG/CLAVULANIC ACID 125MG
     Route: 048
  3. AMOXICILLIN\CLAVULANATE POTASSIUM [Suspect]
     Active Substance: AMOXICILLIN\CLAVULANATE POTASSIUM
     Indication: Gingival swelling
  4. DEXAMETHASONE [Suspect]
     Active Substance: DEXAMETHASONE
     Indication: COVID-19
     Dosage: UNK
     Route: 065
  5. REMDESIVIR [Concomitant]
     Active Substance: REMDESIVIR
     Indication: COVID-19
     Dosage: UNK
     Route: 065
  6. METRONIDAZOLE [Concomitant]
     Active Substance: METRONIDAZOLE
     Indication: Gingival abscess
     Dosage: 250 MILLIGRAM, TID
     Route: 048
  7. METRONIDAZOLE [Concomitant]
     Active Substance: METRONIDAZOLE
     Indication: Gingival swelling
  8. PENICILLIN [Concomitant]
     Active Substance: PENICILLIN
     Indication: Gingival abscess
     Dosage: 800000 INTERNATIONAL UNIT
     Route: 030
  9. PENICILLIN [Concomitant]
     Active Substance: PENICILLIN
     Indication: Gingival swelling

REACTIONS (2)
  - Off label use [Unknown]
  - Drug ineffective [Unknown]
